FAERS Safety Report 4704639-5 (Version None)
Quarter: 2005Q2

REPORT INFORMATION
  Report Type: 
  Country: None (occurrence: None)
  Receive Date: 20050630
  Receipt Date: 20030605
  Transmission Date: 20051028
  Serious: Yes (Hospitalization, Other)
  Sender: FDA-Public Use
  Company Number: US-MERCK-0306USA00763

PATIENT
  Age: 54 Year
  Sex: Male
  Weight: 64 kg

DRUGS (1)
  1. VIOXX [Suspect]
     Route: 048
     Dates: end: 20010629

REACTIONS (20)
  - ACUTE SINUSITIS [None]
  - ANGINA PECTORIS [None]
  - ATELECTASIS [None]
  - BLOOD PRESSURE INCREASED [None]
  - CARDIAC DISORDER [None]
  - CARPAL TUNNEL SYNDROME [None]
  - CHRONIC SINUSITIS [None]
  - CONVULSION [None]
  - CORONARY ARTERY DISEASE [None]
  - CYST [None]
  - HYPERLIPIDAEMIA [None]
  - INTERVERTEBRAL DISC PROTRUSION [None]
  - LUMBAR RADICULOPATHY [None]
  - LUMBAR SPINAL STENOSIS [None]
  - NASAL POLYPS [None]
  - NASAL SEPTUM DEVIATION [None]
  - PAIN IN EXTREMITY [None]
  - RADICULITIS [None]
  - RADICULOPATHY [None]
  - SINUSITIS [None]
